FAERS Safety Report 18400225 (Version 2)
Quarter: 2021Q1

REPORT INFORMATION
  Report Type: Spontaneous
  Country: US (occurrence: US)
  Receive Date: 20201019
  Receipt Date: 20210225
  Transmission Date: 20210419
  Serious: Yes (Hospitalization)
  Sender: FDA-Public Use
  Company Number: US-BIOVITRUM-2020US5490

PATIENT
  Sex: Male
  Weight: 12 kg

DRUGS (8)
  1. SYNAGIS [Suspect]
     Active Substance: PALIVIZUMAB
     Indication: WHEEZING
  2. SYNAGIS [Suspect]
     Active Substance: PALIVIZUMAB
     Indication: PREMATURE BABY
  3. SYNAGIS [Suspect]
     Active Substance: PALIVIZUMAB
     Indication: CHRONIC RESPIRATORY FAILURE
  4. SYNAGIS [Suspect]
     Active Substance: PALIVIZUMAB
     Indication: HYPOXIA
  5. MULTIVITAMIN [Concomitant]
     Active Substance: VITAMINS
  6. SYNAGIS [Suspect]
     Active Substance: PALIVIZUMAB
     Indication: BRONCHOPULMONARY DYSPLASIA
     Route: 030
  7. SYNAGIS [Suspect]
     Active Substance: PALIVIZUMAB
     Indication: HYPOXIA
  8. SYNAGIS [Suspect]
     Active Substance: PALIVIZUMAB
     Indication: LOW BIRTH WEIGHT BABY

REACTIONS (1)
  - Respiratory disorder [Unknown]
